FAERS Safety Report 9701351 (Version 1)
Quarter: 2013Q4

REPORT INFORMATION
  Report Type: Spontaneous
  Country: US (occurrence: US)
  Receive Date: 20131121
  Receipt Date: 20131121
  Transmission Date: 20140711
  Serious: No
  Sender: FDA-Public Use
  Company Number: US-GILEAD-2008-0016549

PATIENT
  Age: 40 Year
  Sex: Female

DRUGS (7)
  1. LETAIRIS [Suspect]
     Route: 048
     Dates: start: 20080501
  2. REVATIO [Concomitant]
     Route: 048
  3. PREDNISONE [Concomitant]
     Route: 048
  4. LASIX [Concomitant]
     Route: 048
  5. SPIRONOLACTONE [Concomitant]
     Route: 048
  6. MS04 [Concomitant]
     Route: 048
  7. BACTRIM DS [Concomitant]
     Route: 048

REACTIONS (1)
  - Abdominal pain upper [None]
